FAERS Safety Report 10190233 (Version 1)
Quarter: 2014Q2

REPORT INFORMATION
  Report Type: Spontaneous
  Country: FR (occurrence: FR)
  Receive Date: 20140522
  Receipt Date: 20140522
  Transmission Date: 20141212
  Serious: Yes (Hospitalization)
  Sender: FDA-Public Use
  Company Number: FR-MERCK-1405FRA009186

PATIENT
  Sex: Female

DRUGS (1)
  1. NOXAFIL [Suspect]
     Indication: BRONCHOPULMONARY ASPERGILLOSIS
     Route: 048

REACTIONS (4)
  - Hypertension [Recovered/Resolved]
  - Tremor [Recovered/Resolved]
  - Musculoskeletal pain [Recovered/Resolved]
  - Alopecia [Not Recovered/Not Resolved]
